FAERS Safety Report 11570709 (Version 1)
Quarter: 2015Q3

REPORT INFORMATION
  Report Type: Spontaneous
  Country: US (occurrence: US)
  Receive Date: 20150916
  Receipt Date: 20150916
  Transmission Date: 20151125
  Serious: No
  Sender: FDA-Public Use
  Company Number: US-ELI_LILLY_AND_COMPANY-US200909003278

PATIENT
  Sex: Female

DRUGS (2)
  1. FORTEO [Suspect]
     Active Substance: TERIPARATIDE
     Indication: OSTEOPOROSIS
     Dosage: UNK, UNKNOWN
     Route: 065
     Dates: start: 200905, end: 200908
  2. SYNTHROID [Concomitant]
     Active Substance: LEVOTHYROXINE SODIUM

REACTIONS (8)
  - Dizziness [Recovered/Resolved]
  - Blood calcium increased [Not Recovered/Not Resolved]
  - Nausea [Recovered/Resolved]
  - Calcium metabolism disorder [Unknown]
  - Chest discomfort [Recovered/Resolved]
  - Vomiting [Recovered/Resolved]
  - Disorientation [Recovered/Resolved]
  - Dyspepsia [Recovered/Resolved]

NARRATIVE: CASE EVENT DATE: 2009
